FAERS Safety Report 7360447-0 (Version None)
Quarter: 2011Q1

REPORT INFORMATION
  Report Type: 
  Country: None (occurrence: None)
  Receive Date: 20110309
  Receipt Date: 20110226
  Transmission Date: 20110831
  Serious: Yes (Hospitalization)
  Sender: FDA-Public Use
  Company Number: AXC-2011-000095

PATIENT
  Age: 54 Year
  Sex: Female

DRUGS (2)
  1. MESALAMINE [Suspect]
     Indication: COLITIS ULCERATIVE
     Dosage: 2.4 G, QD
  2. PREDNISONE [Suspect]
     Indication: COLITIS ULCERATIVE
     Dosage: TAPERING DOSE

REACTIONS (6)
  - SINUS TACHYCARDIA [None]
  - PERICARDITIS [None]
  - DYSPNOEA [None]
  - PALPITATIONS [None]
  - HEART SOUNDS ABNORMAL [None]
  - PERICARDIAL EFFUSION [None]
